FAERS Safety Report 10926315 (Version 1)
Quarter: 2015Q1

REPORT INFORMATION
  Report Type: Spontaneous
  Country: US (occurrence: US)
  Receive Date: 20150318
  Receipt Date: 20150318
  Transmission Date: 20150721
  Serious: Yes (Hospitalization, Other)
  Sender: FDA-Public Use
  Company Number: US-ELI_LILLY_AND_COMPANY-US201503003097

PATIENT
  Age: 28 Year
  Sex: Female

DRUGS (3)
  1. BUPROPION [Concomitant]
     Active Substance: BUPROPION
     Indication: PRODUCT USED FOR UNKNOWN INDICATION
     Dosage: UNK, UNKNOWN
     Route: 065
  2. PROZAC [Suspect]
     Active Substance: FLUOXETINE HYDROCHLORIDE
     Indication: DEPRESSION
     Dosage: 10 MG, EACH MORNING
     Route: 048
  3. PRE NATAL FORMULA [Concomitant]
     Indication: PRODUCT USED FOR UNKNOWN INDICATION
     Dosage: UNK, QD
     Route: 065

REACTIONS (5)
  - Abdominal pain [Unknown]
  - Arrested labour [Unknown]
  - Anaemia of pregnancy [Unknown]
  - Depression [Unknown]
  - Back pain [Unknown]

NARRATIVE: CASE EVENT DATE: 20080210
